FAERS Safety Report 6830027-1 (Version None)
Quarter: 2010Q3

REPORT INFORMATION
  Report Type: 
  Country: None (occurrence: None)
  Receive Date: 20100711
  Receipt Date: 20100428
  Transmission Date: 20110219
  Serious: No
  Sender: FDA-Public Use
  Company Number: US-ALLERGAN-1005596US

PATIENT
  Sex: Female

DRUGS (4)
  1. LATISSE [Suspect]
     Indication: GROWTH OF EYELASHES
     Dosage: 1 GTT, QHS
     Dates: start: 20100201
  2. MOTRIN [Concomitant]
     Indication: HEADACHE
  3. ADVIL                              /00044201/ [Concomitant]
     Indication: HEADACHE
  4. COMBINATIONS OF VITAMINS [Concomitant]
     Dosage: UNK

REACTIONS (4)
  - EYELID IRRITATION [None]
  - MADAROSIS [None]
  - SKIN DISCOLOURATION [None]
  - WRONG TECHNIQUE IN DRUG USAGE PROCESS [None]
